FAERS Safety Report 6864813 (Version 3)
Quarter: 2013Q2

REPORT INFORMATION
  Report Type: Spontaneous
  Country: US (occurrence: US)
  Receive Date: 20081223
  Receipt Date: 20130522
  Transmission Date: 20140414
  Serious: Yes (Hospitalization, Other)
  Sender: FDA-Public Use
  Company Number: US-BIOGENIDEC-2008BI034171

PATIENT
  Age: 58 Year
  Sex: Female

DRUGS (2)
  1. AVONEX [Suspect]
     Indication: MULTIPLE SCLEROSIS
     Route: 030
     Dates: start: 20070810, end: 20071201
  2. AVONEX [Suspect]
     Indication: MULTIPLE SCLEROSIS
     Route: 030
     Dates: start: 20080623

REACTIONS (31)
  - Retinal detachment [Recovered/Resolved]
  - Scoliosis [Recovered/Resolved]
  - Kyphosis [Recovered/Resolved]
  - Spinal column stenosis [Recovered/Resolved]
  - Nerve compression [Recovered/Resolved]
  - Spondylitis [Recovered/Resolved]
  - Back pain [Recovered/Resolved]
  - Intraocular pressure increased [Unknown]
  - Blood potassium decreased [Unknown]
  - Gait disturbance [Not Recovered/Not Resolved]
  - Aortic rupture [Unknown]
  - Chest pain [Recovered/Resolved]
  - Vomiting [Unknown]
  - Pain [Not Recovered/Not Resolved]
  - Groin pain [Not Recovered/Not Resolved]
  - Dysstasia [Not Recovered/Not Resolved]
  - Loss of control of legs [Not Recovered/Not Resolved]
  - Fall [Recovered/Resolved]
  - Lymphoedema [Not Recovered/Not Resolved]
  - Visual impairment [Not Recovered/Not Resolved]
  - Eye disorder [Recovered/Resolved]
  - Eye complication associated with device [Recovered/Resolved]
  - Mitral valve incompetence [Unknown]
  - Tricuspid valve incompetence [Unknown]
  - Orthostatic hypertension [Not Recovered/Not Resolved]
  - Sleep apnoea syndrome [Not Recovered/Not Resolved]
  - Visual field defect [Not Recovered/Not Resolved]
  - Arthralgia [Not Recovered/Not Resolved]
  - Pain in extremity [Not Recovered/Not Resolved]
  - Cardiac discomfort [Unknown]
  - Dyspnoea [Recovered/Resolved]
